FAERS Safety Report 9466989 (Version 2)
Quarter: 2013Q3

REPORT INFORMATION
  Report Type: Spontaneous
  Country: US (occurrence: US)
  Receive Date: 20130820
  Receipt Date: 20130911
  Transmission Date: 20140515
  Serious: Yes (Hospitalization)
  Sender: FDA-Public Use
  Company Number: US-GLAXOSMITHKLINE-A1001595A

PATIENT
  Age: 54 Year
  Sex: Female
  Weight: 91.8 kg

DRUGS (1)
  1. AVANDIA [Suspect]
     Indication: DIABETES MELLITUS
     Route: 048
     Dates: start: 20031002, end: 20100827

REACTIONS (3)
  - Cardiac failure [Unknown]
  - Respiratory failure [Unknown]
  - Quadriplegia [Unknown]
